FAERS Safety Report 11273295 (Version 1)
Quarter: 2015Q3

REPORT INFORMATION
  Report Type: Spontaneous
  Country: US (occurrence: US)
  Receive Date: 20150715
  Receipt Date: 20150715
  Transmission Date: 20151125
  Serious: No
  Sender: FDA-Public Use
  Company Number: US-PFIZER INC-2015234902

PATIENT
  Age: 82 Year
  Sex: Female
  Weight: 47 kg

DRUGS (3)
  1. TOVIAZ [Concomitant]
     Active Substance: FESOTERODINE FUMARATE
     Dosage: UNK
  2. NEXIUM 24HR [Concomitant]
     Active Substance: ESOMEPRAZOLE MAGNESIUM
     Dosage: UNK
  3. CELECOXIB. [Suspect]
     Active Substance: CELECOXIB
     Indication: SPINAL OSTEOARTHRITIS
     Dosage: 200 MG, 1X/DAY
     Route: 048
     Dates: start: 2015

REACTIONS (1)
  - Drug ineffective [Unknown]
